FAERS Safety Report 20382114 (Version 1)
Quarter: 2022Q1

REPORT INFORMATION
  Report Type: Spontaneous
  Country: US (occurrence: None)
  Receive Date: 20220126
  Receipt Date: 20220126
  Transmission Date: 20220423
  Serious: No
  Sender: FDA-Public Use
  Company Number: None

PATIENT
  Age: 67 Year
  Sex: Female
  Weight: 59.4 kg

DRUGS (1)
  1. ROCKLATAN [Suspect]
     Active Substance: LATANOPROST\NETARSUDIL MESYLATE
     Indication: Open angle glaucoma
     Dosage: FREQUENCY : AT BEDTIME;?
     Route: 047
     Dates: start: 20220117, end: 20220118

REACTIONS (3)
  - Eye irritation [None]
  - Ocular hyperaemia [None]
  - Conjunctival haemorrhage [None]

NARRATIVE: CASE EVENT DATE: 20220118
